FAERS Safety Report 7081838-1 (Version None)
Quarter: 2010Q4

REPORT INFORMATION
  Report Type: 
  Country: None (occurrence: None)
  Receive Date: 20101103
  Receipt Date: 20101020
  Transmission Date: 20110411
  Serious: Yes (Other)
  Sender: FDA-Public Use
  Company Number: US-GENZYME-FLUD-1000341

PATIENT
  Age: 8 Month
  Sex: Male

DRUGS (8)
  1. FLUDARA [Suspect]
     Indication: BONE MARROW FAILURE
     Dosage: 1.0 MG/KG, QDX5
     Route: 065
  2. CAMPATH [Suspect]
     Indication: BONE MARROW FAILURE
     Dosage: 10 MG, QDX3
     Route: 065
  3. MELPHALAN HYDROCHLORIDE [Suspect]
     Indication: BONE MARROW FAILURE
     Dosage: 4.7 MG/KG, ONCE
     Route: 065
  4. CYCLOSPORINE [Concomitant]
     Indication: PROPHYLAXIS AGAINST GRAFT VERSUS HOST DISEASE
  5. METHOTREXATE [Concomitant]
     Indication: PROPHYLAXIS AGAINST GRAFT VERSUS HOST DISEASE
  6. IMMUNE GLOBULIN NOS [Concomitant]
     Indication: THROMBOCYTOPENIA NEONATAL
  7. ANTIBIOTICS [Concomitant]
     Indication: SEPSIS
     Route: 042
  8. GRANULOCYTE COLONY STIMULATING FACTOR [Concomitant]
     Indication: GRANULOCYTE COUNT DECREASED

REACTIONS (5)
  - CHOLECYSTITIS ACUTE [None]
  - DEVELOPMENTAL DELAY [None]
  - FEBRILE NEUTROPENIA [None]
  - GASTROINTESTINAL MOTILITY DISORDER [None]
  - MUCOSAL INFLAMMATION [None]
